FAERS Safety Report 8267984-5 (Version None)
Quarter: 2012Q2

REPORT INFORMATION
  Report Type: 
  Country: None (occurrence: None)
  Receive Date: 20120409
  Receipt Date: 20120405
  Transmission Date: 20120825
  Serious: Yes (Other)
  Sender: FDA-Public Use
  Company Number: US-PFIZER INC-2012086780

PATIENT
  Sex: Male
  Weight: 63.492 kg

DRUGS (2)
  1. PREPARATION H HEMORRHOIDAL SUPPOSITORIES [Suspect]
     Dosage: UNK, AS NEEDED
     Route: 054
     Dates: start: 20120322, end: 20120403
  2. PREPARATION H HEMORRHOIDAL SUPPOSITORIES [Suspect]
     Indication: HAEMORRHOIDS
     Dosage: UNK, AS NEEDED
     Route: 054

REACTIONS (3)
  - INSOMNIA [None]
  - HAEMATOCHEZIA [None]
  - FEAR [None]
